FAERS Safety Report 6781448-7 (Version None)
Quarter: 2010Q2

REPORT INFORMATION
  Report Type: 
  Country: None (occurrence: None)
  Receive Date: 20100621
  Receipt Date: 20100611
  Transmission Date: 20101027
  Serious: Yes (Death, Hospitalization)
  Sender: FDA-Public Use
  Company Number: US-ROCHE-705303

PATIENT
  Sex: Male
  Weight: 77.6 kg

DRUGS (1)
  1. CAPECITABINE [Suspect]
     Route: 048
     Dates: start: 20100218, end: 20100606

REACTIONS (3)
  - DEATH [None]
  - HOSPITALISATION [None]
  - MALAISE [None]
